FAERS Safety Report 7724017-4 (Version None)
Quarter: 2011Q3

REPORT INFORMATION
  Report Type: 
  Country: None (occurrence: None)
  Receive Date: 20110901
  Receipt Date: 20110826
  Transmission Date: 20111222
  Serious: Yes (Other)
  Sender: FDA-Public Use
  Company Number: US-BAYER-2011-079372

PATIENT
  Age: 63 Year
  Sex: Male

DRUGS (1)
  1. NEXAVAR [Suspect]
     Indication: GASTROINTESTINAL STROMAL TUMOUR
     Dosage: 200 MG, BID
     Dates: start: 20110818

REACTIONS (3)
  - DEEP VEIN THROMBOSIS [None]
  - PAIN IN EXTREMITY [None]
  - OEDEMA PERIPHERAL [None]
